FAERS Safety Report 19051034 (Version 1)
Quarter: 2021Q1

REPORT INFORMATION
  Report Type: Spontaneous
  Country: US (occurrence: US)
  Receive Date: 20210324
  Receipt Date: 20210324
  Transmission Date: 20210420
  Serious: Yes (Other)
  Sender: FDA-Public Use
  Company Number: US-ALLERGAN-2022343US

PATIENT
  Age: 11 Year
  Sex: Male

DRUGS (1)
  1. CANASA [Suspect]
     Active Substance: MESALAMINE
     Indication: PROCTITIS ULCERATIVE
     Dosage: 1000 MG, QD
     Dates: start: 202002, end: 202005

REACTIONS (3)
  - Inability to afford medication [Unknown]
  - Diarrhoea haemorrhagic [Unknown]
  - Off label use [Unknown]

NARRATIVE: CASE EVENT DATE: 202002
